FAERS Safety Report 9580679 (Version 1)
Quarter: 2013Q4

REPORT INFORMATION
  Report Type: Report from Study
  Country: AR (occurrence: AR)
  Receive Date: 20131002
  Receipt Date: 20131002
  Transmission Date: 20140711
  Serious: Yes (Other)
  Sender: FDA-Public Use
  Company Number: AR-US-EMD SERONO, INC.-7238929

PATIENT
  Sex: Female

DRUGS (1)
  1. SAIZEN [Suspect]
     Indication: TURNER^S SYNDROME
     Dates: start: 20121023

REACTIONS (1)
  - Diabetes mellitus [Unknown]
